FAERS Safety Report 7980152-7 (Version None)
Quarter: 2011Q4

REPORT INFORMATION
  Report Type: 
  Country: None (occurrence: None)
  Receive Date: 20111212
  Receipt Date: 20111130
  Transmission Date: 20120403
  Serious: Yes (Hospitalization)
  Sender: FDA-Public Use
  Company Number: 7096978

PATIENT
  Age: 56 Year
  Sex: Female

DRUGS (4)
  1. PREDNISOLONE [Suspect]
     Indication: ADRENAL INSUFFICIENCY
     Dosage: (7.5 MG)
  2. FLUDROCORTISONE ACETATE [Suspect]
     Indication: ADRENAL INSUFFICIENCY
     Dosage: (0.1 MG)
  3. LEVOTHYROXINE SODIUM [Suspect]
     Indication: ADRENAL INSUFFICIENCY
  4. PSYLLIUM (PLANTAGO AFRA) (PSYLLIUM) [Suspect]
     Indication: ANAL FISSURE

REACTIONS (4)
  - DRUG INTERACTION [None]
  - ADRENOCORTICAL INSUFFICIENCY ACUTE [None]
  - BLOOD PRESSURE DECREASED [None]
  - ABDOMINAL TENDERNESS [None]
